FAERS Safety Report 4547740-1 (Version None)
Quarter: 2005Q1

REPORT INFORMATION
  Report Type: 
  Country: None (occurrence: None)
  Receive Date: 20050107
  Receipt Date: 20041229
  Transmission Date: 20050727
  Serious: Yes (Hospitalization)
  Sender: FDA-Public Use
  Company Number: CA-MERCK-0501CAN00006

PATIENT
  Age: 79 Year
  Sex: Male

DRUGS (3)
  1. ZOCOR [Suspect]
     Indication: HYPERCHOLESTEROLAEMIA
     Route: 048
  2. COLCHICINE [Suspect]
     Indication: GOUT
     Route: 048
  3. COLCHICINE [Suspect]
     Route: 048

REACTIONS (7)
  - ATRIAL FIBRILLATION [None]
  - BETA HAEMOLYTIC STREPTOCOCCAL INFECTION [None]
  - DRUG INTERACTION [None]
  - GOUT [None]
  - MYOPATHY [None]
  - NERVE CONDUCTION STUDIES ABNORMAL [None]
  - RENAL FAILURE [None]
